FAERS Safety Report 5746645-8 (Version None)
Quarter: 2008Q2

REPORT INFORMATION
  Report Type: 
  Country: None (occurrence: None)
  Receive Date: 20080522
  Receipt Date: 20080515
  Transmission Date: 20081010
  Serious: Yes (Hospitalization)
  Sender: FDA-Public Use
  Company Number: PHHY2008RU07971

PATIENT
  Age: 2 Year
  Sex: Male

DRUGS (5)
  1. CETIRIZINE HCL [Concomitant]
     Indication: DERMATITIS
  2. KETOTIFEN FUMARATE [Concomitant]
     Indication: DERMATITIS
  3. CORTICOSTEROIDS [Concomitant]
  4. ANTIHISTAMINES [Concomitant]
  5. ELIDEL [Suspect]
     Indication: DERMATITIS
     Route: 061

REACTIONS (3)
  - DERMATITIS [None]
  - DERMATITIS ALLERGIC [None]
  - PRURITUS [None]
